FAERS Safety Report 18078181 (Version 1)
Quarter: 2020Q3

REPORT INFORMATION
  Report Type: Spontaneous
  Country: US (occurrence: US)
  Receive Date: 20200727
  Receipt Date: 20200727
  Transmission Date: 20201103
  Serious: Yes (Hospitalization)
  Sender: FDA-Public Use
  Company Number: US-SEATTLE GENETICS-2020SGN02119

PATIENT
  Sex: Female

DRUGS (3)
  1. KEPPRA [Concomitant]
     Active Substance: LEVETIRACETAM
     Indication: SEIZURE
     Dosage: 500 MG, BID
  2. TUKYSA [Suspect]
     Active Substance: TUCATINIB
     Indication: BREAST CANCER
  3. XELODA [Suspect]
     Active Substance: CAPECITABINE
     Indication: BREAST CANCER

REACTIONS (6)
  - Erythema [Unknown]
  - Fatigue [Unknown]
  - Seizure [Unknown]
  - Diarrhoea [Unknown]
  - Skin exfoliation [Unknown]
  - Weight decreased [Unknown]
